FAERS Safety Report 5576260-0 (Version None)
Quarter: 2007Q4

REPORT INFORMATION
  Report Type: 
  Country: None (occurrence: None)
  Receive Date: 20071228
  Receipt Date: 20071220
  Transmission Date: 20080405
  Serious: Yes (Other)
  Sender: FDA-Public Use
  Company Number: US-ROCHE-538215

PATIENT
  Age: 52 Year
  Sex: Male

DRUGS (2)
  1. PEG-INTERFERON A-2A (RO 25-8310) [Suspect]
     Route: 065
     Dates: start: 20070605, end: 20071127
  2. RIBAVIRIN [Suspect]
     Route: 065
     Dates: start: 20070605, end: 20071127

REACTIONS (1)
  - ROAD TRAFFIC ACCIDENT [None]
